FAERS Safety Report 4497543-1 (Version None)
Quarter: 2004Q4

REPORT INFORMATION
  Report Type: 
  Country: None (occurrence: None)
  Receive Date: 20041104
  Receipt Date: 20041019
  Transmission Date: 20050328
  Serious: Yes (Other)
  Sender: FDA-Public Use
  Company Number: B0348726A

PATIENT
  Age: 40 Year
  Sex: Male

DRUGS (3)
  1. THIOGUANINE [Suspect]
     Dosage: 40 MG PER DAY
  2. AZATHIOPRINE [Suspect]
     Dosage: 2 MG/KG
  3. INFLIXIMAB [Concomitant]

REACTIONS (8)
  - BIOPSY LIVER ABNORMAL [None]
  - CHOLESTASIS [None]
  - HEPATIC HAEMORRHAGE [None]
  - HEPATIC NECROSIS [None]
  - HEPATIC VEIN STENOSIS [None]
  - LIVER DISORDER [None]
  - PROTEIN C INCREASED [None]
  - SWELLING [None]
